FAERS Safety Report 16416202 (Version 1)
Quarter: 2019Q2

REPORT INFORMATION
  Report Type: Report from Study
  Country: DE (occurrence: DE)
  Receive Date: 20190611
  Receipt Date: 20190611
  Transmission Date: 20190711
  Serious: Yes (Death, Life-Threatening, Hospitalization, Other)
  Sender: FDA-Public Use
  Company Number: DE-MYLANLABS-2019M1053879

PATIENT
  Age: 77 Year
  Sex: Female
  Weight: 59 kg

DRUGS (2)
  1. TRASTUZUMAB. [Suspect]
     Active Substance: TRASTUZUMAB
     Indication: HER-2 POSITIVE BREAST CANCER
     Dosage: 600 MILLIGRAM, Q3W
     Route: 058
     Dates: start: 20140423, end: 20140514
  2. PACLITAXEL. [Suspect]
     Active Substance: PACLITAXEL
     Indication: HER-2 POSITIVE BREAST CANCER
     Dosage: 520 MILLIGRAM/SQ. METER, QW
     Route: 042
     Dates: start: 20140423, end: 20140514

REACTIONS (5)
  - Ejection fraction decreased [Not Recovered/Not Resolved]
  - Malignant neoplasm progression [Fatal]
  - Respiratory failure [Fatal]
  - Cardiac failure [Fatal]
  - Atrial fibrillation [Fatal]

NARRATIVE: CASE EVENT DATE: 20140603
